FAERS Safety Report 9414290 (Version 1)
Quarter: 2013Q2

REPORT INFORMATION
  Report Type: Spontaneous
  Country: BR (occurrence: None)
  Receive Date: 20130613
  Receipt Date: 20130613
  Transmission Date: 20140414
  Serious: Yes (Other)
  Sender: FDA-Public Use
  Company Number: 2012SA056387

PATIENT
  Age: 33 Year
  Sex: Female
  Weight: 60 kg

DRUGS (3)
  1. CLEXANE (ENOXAPARIN SODIUM) [Suspect]
     Indication: ANTICOAGULANT THERAPY
     Route: 058
     Dates: start: 20120805
  2. ENDOFOLIN [Concomitant]
  3. UTROGESTAN [Concomitant]

REACTIONS (4)
  - Pregnancy [None]
  - Foetal death [None]
  - Abortion [None]
  - Exposure during pregnancy [None]
